FAERS Safety Report 16434009 (Version 1)
Quarter: 2019Q2

REPORT INFORMATION
  Report Type: Not Available
  Country: US (occurrence: US)
  Receive Date: 20190614
  Receipt Date: 20190614
  Transmission Date: 20190711
  Serious: Yes (Other)
  Sender: FDA-Public Use
  Company Number: US-ANIPHARMA-2019-US-010557

PATIENT
  Age: 66 Year
  Sex: Male
  Weight: 104.33 kg

DRUGS (16)
  1. ELIQUIS [Concomitant]
     Active Substance: APIXABAN
     Dosage: 5 MG TABLET
  2. SYNTHROID [Concomitant]
     Active Substance: LEVOTHYROXINE SODIUM
     Dosage: 125 MCG TABLET
  3. COZAAR [Concomitant]
     Active Substance: LOSARTAN POTASSIUM
     Dosage: 100 MG TABLET
  4. ENZALUTAMIDE [Suspect]
     Active Substance: ENZALUTAMIDE
     Dosage: 80 MG DAILY, ESCALATED TO 160 MG DAILY
     Dates: start: 201806, end: 201811
  5. PREDNISONE. [Suspect]
     Active Substance: PREDNISONE
     Dosage: 5 MG DAILY
     Dates: start: 201609, end: 201802
  6. CELEXA [Concomitant]
     Active Substance: CITALOPRAM HYDROBROMIDE
     Dosage: 20 MG TABLET
  7. NORVASC [Concomitant]
     Active Substance: AMLODIPINE BESYLATE
     Dosage: 10 MG TABLET
  8. ZOFRAN [Concomitant]
     Active Substance: ONDANSETRON HYDROCHLORIDE
     Dosage: 4 MG TABLET
  9. ZOCOR [Concomitant]
     Active Substance: SIMVASTATIN
     Dosage: 10 MG TABLET AND 20 MG TABLET
  10. ABIRATERONE. [Suspect]
     Active Substance: ABIRATERONE ACETATE
     Dosage: 1000 MG DAILY
     Dates: start: 201609, end: 201802
  11. DOCETAXEL. [Suspect]
     Active Substance: DOCETAXEL
     Dosage: UNK
     Dates: start: 2019
  12. CARBOPLATIN. [Suspect]
     Active Substance: CARBOPLATIN
     Dosage: UNK
     Dates: start: 2019
  13. TENORMIN [Concomitant]
     Active Substance: ATENOLOL
     Dosage: 50 MG TABLET
  14. CASODEX [Suspect]
     Active Substance: BICALUTAMIDE
     Indication: PRODUCT USED FOR UNKNOWN INDICATION
     Dosage: UNK
     Dates: start: 2013, end: 2016
  15. AMBIEN [Concomitant]
     Active Substance: ZOLPIDEM TARTRATE
     Dosage: 10 MG TABLET
  16. PROVENGE [Suspect]
     Active Substance: SIPULEUCEL-T
     Dosage: UNK
     Dates: start: 20160930

REACTIONS (7)
  - Renal mass [Unknown]
  - Prostatic specific antigen increased [Unknown]
  - Retroperitoneal lymphadenopathy [Unknown]
  - Drug ineffective [Unknown]
  - Disease progression [Unknown]
  - Lymphadenopathy mediastinal [Unknown]
  - Renal cell carcinoma [Unknown]

NARRATIVE: CASE EVENT DATE: 2016
